FAERS Safety Report 13560240 (Version 1)
Quarter: 2017Q2

REPORT INFORMATION
  Report Type: Spontaneous
  Country: US (occurrence: US)
  Receive Date: 20170518
  Receipt Date: 20170518
  Transmission Date: 20170830
  Serious: No
  Sender: FDA-Public Use
  Company Number: US-BAYER-2017-083582

PATIENT
  Sex: Female

DRUGS (2)
  1. ALEVE [Suspect]
     Active Substance: NAPROXEN SODIUM
     Dosage: UNK
     Route: 065
     Dates: end: 20170501
  2. ALEVE [Suspect]
     Active Substance: NAPROXEN SODIUM
     Dosage: UNK
     Route: 065
     Dates: end: 20170501

REACTIONS (4)
  - Product use issue [Unknown]
  - Wrong technique in product usage process [Unknown]
  - Inappropriate prescribing [Unknown]
  - Dyspepsia [Unknown]
